FAERS Safety Report 8368568-0 (Version None)
Quarter: 2012Q2

REPORT INFORMATION
  Report Type: 
  Country: None (occurrence: None)
  Receive Date: 20120518
  Receipt Date: 20120507
  Transmission Date: 20120825
  Serious: No
  Sender: FDA-Public Use
  Company Number: US-BIOGENIDEC-2011BI022037

PATIENT
  Sex: Female

DRUGS (3)
  1. TYSABRI [Suspect]
     Indication: MULTIPLE SCLEROSIS
     Route: 042
     Dates: start: 20050121, end: 20050301
  2. TYSABRI [Suspect]
     Route: 042
     Dates: start: 20061018
  3. AVONEX [Concomitant]
     Indication: MULTIPLE SCLEROSIS
     Route: 030

REACTIONS (6)
  - URINARY TRACT INFECTION [None]
  - PAIN IN EXTREMITY [None]
  - NAUSEA [None]
  - PAIN OF SKIN [None]
  - HERPES ZOSTER [None]
  - PAIN [None]
